FAERS Safety Report 9931470 (Version 3)
Quarter: 2014Q2

REPORT INFORMATION
  Report Type: Spontaneous
  Country: JP (occurrence: JP)
  Receive Date: 20140228
  Receipt Date: 20140604
  Transmission Date: 20141212
  Serious: Yes (Death, Other)
  Sender: FDA-Public Use
  Company Number: JP-ROCHE-1353879

PATIENT
  Age: 66 Year
  Sex: Female
  Weight: 64 kg

DRUGS (6)
  1. PERJETA [Suspect]
     Indication: BREAST CANCER METASTATIC
     Dosage: STRENGTH : 420 MG/14 ML
     Route: 041
     Dates: start: 20140131
  2. HERCEPTIN [Suspect]
     Indication: BREAST CANCER METASTATIC
     Route: 041
     Dates: start: 20140131
  3. GRANISETRON [Concomitant]
     Indication: PROPHYLAXIS
     Route: 042
     Dates: start: 20140131, end: 20140131
  4. DEXART [Concomitant]
     Indication: PROPHYLAXIS
     Route: 042
     Dates: start: 20140131
  5. ONETAXOTERE [Concomitant]
     Indication: BREAST CANCER METASTATIC
     Route: 041
     Dates: start: 20140131, end: 20140131
  6. DENOTAS [Concomitant]
     Indication: PROPHYLAXIS
     Route: 048
     Dates: start: 20130726, end: 20140131

REACTIONS (7)
  - Renal impairment [Not Recovered/Not Resolved]
  - Hepatic function abnormal [Not Recovered/Not Resolved]
  - Respiratory failure [Fatal]
  - Cardiac failure [Fatal]
  - Blood pressure decreased [Fatal]
  - Altered state of consciousness [Fatal]
  - Breast cancer metastatic [Fatal]
